FAERS Safety Report 6177917-3 (Version None)
Quarter: 2009Q2

REPORT INFORMATION
  Report Type: 
  Country: None (occurrence: None)
  Receive Date: 20090501
  Receipt Date: 20090501
  Transmission Date: 20091009
  Serious: Yes (Hospitalization)
  Sender: FDA-Public Use
  Company Number: None

PATIENT
  Age: 85 Year
  Sex: Male

DRUGS (1)
  1. BACITRACIN [Suspect]
     Indication: INFECTION
     Dosage: QS OTHER TOP
     Route: 061
     Dates: start: 20090131, end: 20090217

REACTIONS (3)
  - PRURITUS [None]
  - RASH [None]
  - URTICARIA [None]
